FAERS Safety Report 9546891 (Version 2)
Quarter: 2013Q3

REPORT INFORMATION
  Report Type: Spontaneous
  Country: US (occurrence: None)
  Receive Date: 20130606
  Receipt Date: 20130906
  Transmission Date: 20140515
  Serious: Yes (Other)
  Sender: FDA-Public Use
  Company Number: 163-POMAL-13041398

PATIENT
  Age: 69 Year
  Sex: Female
  Weight: 99.79 kg

DRUGS (7)
  1. POMALYST [Suspect]
     Indication: PLASMA CELL MYELOMA
     Dosage: 4 MG, 21 IN 21 D
     Dates: start: 20130311
  2. Z-PACK (AZITHROMYCIN) [Concomitant]
  3. CODEINE [Concomitant]
  4. DEXAMETHASONE [Concomitant]
  5. DILAUDID (HYDROMORPHONE HYDROCHLORIDE) [Concomitant]
  6. CYMBALTA (DULOXETINE HYDROCHLORIDE) [Concomitant]
  7. VELCADE (BORTEZOMIB) [Concomitant]

REACTIONS (10)
  - Skin ulcer [None]
  - Constipation [None]
  - Neuropathy peripheral [None]
  - Sensation of heaviness [None]
  - Wheezing [None]
  - Upper-airway cough syndrome [None]
  - Cough [None]
  - Nervousness [None]
  - Hypoacusis [None]
  - Pain [None]
